FAERS Safety Report 5127830-5 (Version None)
Quarter: 2006Q4

REPORT INFORMATION
  Report Type: 
  Country: None (occurrence: None)
  Receive Date: 20061016
  Receipt Date: 20061006
  Transmission Date: 20070319
  Serious: Yes (Other)
  Sender: FDA-Public Use
  Company Number: US-MERCK-0610USA04674

PATIENT
  Sex: Female

DRUGS (12)
  1. ALDOMET [Suspect]
     Route: 065
  2. EPOGEN [Suspect]
     Indication: ANAEMIA
     Route: 058
     Dates: start: 20051107, end: 20051227
  3. EPOGEN [Suspect]
     Route: 058
     Dates: start: 20051227
  4. EPOGEN [Suspect]
     Route: 058
     Dates: start: 20051227
  5. EPOGEN [Suspect]
     Indication: PANCYTOPENIA
     Route: 058
     Dates: start: 20051107, end: 20051227
  6. EPOGEN [Suspect]
     Route: 058
     Dates: start: 20051227
  7. EPOGEN [Suspect]
     Route: 058
     Dates: start: 20051227
  8. PEGINTERFERON ALFA-2B [Suspect]
     Indication: HEPATITIS C
     Route: 065
     Dates: start: 20051014
  9. RIBAVIRIN [Suspect]
     Indication: HEPATITIS C
     Route: 065
     Dates: start: 20051001
  10. ALLOPURINOL SODIUM [Suspect]
     Route: 065
  11. SULFAMETHOXAZOLE [Suspect]
     Route: 065
     Dates: start: 20060111, end: 20060120
  12. TRIMETHOPRIM [Suspect]
     Route: 065
     Dates: start: 20060111, end: 20060120

REACTIONS (2)
  - DRUG INEFFECTIVE [None]
  - DRUG SPECIFIC ANTIBODY ABSENT [None]
